FAERS Safety Report 6686725-6 (Version None)
Quarter: 2010Q2

REPORT INFORMATION
  Report Type: 
  Country: None (occurrence: None)
  Receive Date: 20100415
  Receipt Date: 20100406
  Transmission Date: 20101027
  Serious: Yes (Hospitalization)
  Sender: FDA-Public Use
  Company Number: 2010AM001693

PATIENT
  Age: 57 Year
  Sex: Male
  Weight: 124.7392 kg

DRUGS (9)
  1. SYMLIN [Suspect]
     Indication: TYPE 2 DIABETES MELLITUS
     Dosage: 60 MCG;TID;SC
     Route: 058
     Dates: start: 20090101
  2. ACTOS [Concomitant]
  3. LEXAPRO [Concomitant]
  4. BUSPIRONE HCL [Concomitant]
  5. DIOVAN [Concomitant]
  6. PENTAZOCINE [Concomitant]
  7. NALOXONE [Concomitant]
  8. CARISOPRODOL/ASA [Concomitant]
  9. LIDODERM [Concomitant]

REACTIONS (8)
  - BLOOD GLUCOSE INCREASED [None]
  - DIZZINESS [None]
  - FALL [None]
  - HEAD INJURY [None]
  - INSOMNIA [None]
  - MEMORY IMPAIRMENT [None]
  - PAIN [None]
  - SOMNOLENCE [None]
